FAERS Safety Report 4996425-6 (Version None)
Quarter: 2006Q2

REPORT INFORMATION
  Report Type: 
  Country: None (occurrence: None)
  Receive Date: 20060505
  Receipt Date: 20060425
  Transmission Date: 20061013
  Serious: Yes (Life-Threatening, Hospitalization)
  Sender: FDA-Public Use
  Company Number: 2006003008

PATIENT
  Age: 46 Year
  Sex: Female
  Weight: 58 kg

DRUGS (15)
  1. AZITHROMYCIN [Suspect]
     Indication: PNEUMONIA MYCOPLASMAL
     Dosage: 500 MG (1 IN 1 D), ORAL
     Route: 048
     Dates: start: 20051011, end: 20051013
  2. PL (PYRIDOXAL) [Concomitant]
  3. MEDICON (DEXTROMETHORPHAN HYDROBROMIDE) [Concomitant]
  4. AMBROXOL HYDROCHLORIDE (AMBROXOL HYDROCHLORIDE) [Concomitant]
  5. PABRON (CAFFEINE, CARBINOXAMINE MALEATE, DEXTROMETHORPHAN HYDROBROMIDE [Concomitant]
  6. KAIGEN (CAFFEINE, CINNAMON, GLYCYRRHIZA EXTRACT, METHYLEPHEDRINE HYDRO [Concomitant]
  7. GATIFLOXACIN [Concomitant]
  8. CLARITHROMYCIN [Concomitant]
  9. ROCEPHIN [Concomitant]
  10. TIENAM (CILASTATIN, IMIPENEM) [Concomitant]
  11. LEVOFLOXACIN [Concomitant]
  12. NAIXAN (NAPROXEN SODIUM) [Concomitant]
  13. FLOMOX (CEFCAPENE PIVOXIL HYDROCHLORIDE) [Concomitant]
  14. LYZYME (LYSOZYME HYDROCHLORIDE) [Concomitant]
  15. COUGHCODE (BROMISOVAL, DIHYDROCODEINE PHOSPHATE, DIPROPHYLLINE, METHYL [Concomitant]

REACTIONS (11)
  - ALANINE AMINOTRANSFERASE INCREASED [None]
  - ASPARTATE AMINOTRANSFERASE INCREASED [None]
  - DRUG HYPERSENSITIVITY [None]
  - EOSINOPHIL COUNT INCREASED [None]
  - INTERSTITIAL LUNG DISEASE [None]
  - LYMPHOCYTE STIMULATION TEST POSITIVE [None]
  - OSTEOARTHRITIS [None]
  - PLEURAL EFFUSION [None]
  - PNEUMOTHORAX [None]
  - SLEEP DISORDER [None]
  - TEMPOROMANDIBULAR JOINT SYNDROME [None]
